FAERS Safety Report 10418071 (Version 1)
Quarter: 2014Q2

REPORT INFORMATION
  Report Type: Spontaneous
  Country: US (occurrence: None)
  Receive Date: 20140609
  Receipt Date: 20140609
  Transmission Date: 20141212
  Serious: No
  Sender: FDA-Public Use
  Company Number: 2014TUS002395

PATIENT
  Age: 51 Year
  Sex: Female

DRUGS (6)
  1. BRINTELLIX 10 MG [Suspect]
     Indication: DEPRESSION
     Route: 048
     Dates: start: 20140226, end: 20140305
  2. LEXAPRO (ESCITALOPRAMOXALATE) [Concomitant]
  3. SEROQUEL (QUETIAPINE FUMARATE) [Concomitant]
  4. CLONAZEPAM [Concomitant]
  5. LORAZEPAM [Concomitant]
  6. ZOLPIDEM [Concomitant]

REACTIONS (3)
  - Rash [None]
  - Vertigo [None]
  - Pruritus generalised [None]
